APPROVED DRUG PRODUCT: LANOXIN
Active Ingredient: DIGOXIN
Strength: 0.5MG
Dosage Form/Route: TABLET;ORAL
Application: N020405 | Product #006
Applicant: ADVANZ PHARMA (US) CORP
Approved: Sep 30, 1997 | RLD: No | RS: No | Type: DISCN